FAERS Safety Report 7349941-6 (Version None)
Quarter: 2011Q1

REPORT INFORMATION
  Report Type: 
  Country: None (occurrence: None)
  Receive Date: 20110309
  Receipt Date: 20110309
  Transmission Date: 20110831
  Serious: Yes (Life-Threatening, Other)
  Sender: FDA-Public Use
  Company Number: None

PATIENT

DRUGS (1)
  1. LEVETIRACETAM [Suspect]
     Indication: PETIT MAL EPILEPSY
     Dosage: 1 TABLET TWICE DAILY PO
     Route: 048
     Dates: start: 20100701, end: 20110301

REACTIONS (6)
  - SUICIDAL IDEATION [None]
  - DEPRESSION [None]
  - ANXIETY [None]
  - PARAESTHESIA [None]
  - PANIC ATTACK [None]
  - FATIGUE [None]
